FAERS Safety Report 4755042-3 (Version None)
Quarter: 2005Q3

REPORT INFORMATION
  Report Type: 
  Country: None (occurrence: None)
  Receive Date: 20050829
  Receipt Date: 20050818
  Transmission Date: 20060218
  Serious: Yes (Life-Threatening)
  Sender: FDA-Public Use
  Company Number: FR-BRISTOL-MYERS SQUIBB COMPANY-13083977

PATIENT
  Age: 50 Year
  Sex: Male

DRUGS (4)
  1. REYATAZ [Suspect]
     Indication: HIV INFECTION
     Route: 048
     Dates: start: 20040527
  2. NORVIR [Concomitant]
  3. VIREAD [Concomitant]
  4. EPIVIR [Concomitant]

REACTIONS (1)
  - MYOCARDIAL INFARCTION [None]
